FAERS Safety Report 9091614 (Version 1)
Quarter: 2013Q1

REPORT INFORMATION
  Report Type: Report from Study
  Country: US (occurrence: US)
  Receive Date: 20130131
  Receipt Date: 20130131
  Transmission Date: 20140127
  Serious: No
  Sender: FDA-Public Use
  Company Number: US-ABBOTT-12P-163-1003664-00

PATIENT
  Age: 49 Year
  Sex: Female

DRUGS (12)
  1. HUMIRA [Suspect]
     Indication: PSORIASIS
     Route: 058
     Dates: start: 20121024
  2. HUMALOG [Concomitant]
     Indication: PRODUCT USED FOR UNKNOWN INDICATION
     Dosage: 75/25
  3. VICTOZA [Concomitant]
     Indication: PRODUCT USED FOR UNKNOWN INDICATION
     Dosage: 1.8 MG DAILY
  4. METFORMIN [Concomitant]
     Indication: DIABETES MELLITUS
  5. NEXIUM [Concomitant]
     Indication: PRODUCT USED FOR UNKNOWN INDICATION
     Dosage: 20 MG DAILY
  6. LOSARTAN HCT [Concomitant]
     Indication: HYPERTENSION
     Dosage: 12.5MG DAILY
  7. ASPIRIN [Concomitant]
     Indication: ANTICOAGULANT THERAPY
     Dosage: 81MG DAILY
  8. METOPROLOL [Concomitant]
     Indication: BLOOD PRESSURE
     Dosage: 50MG DAILY
  9. PLAVIX [Concomitant]
     Indication: ANTICOAGULANT THERAPY
     Dosage: 75MG DAILY
  10. ISOSORB [Concomitant]
     Indication: PROPHYLAXIS
     Dosage: 30MG DAILY
  11. COMBIGAN [Concomitant]
     Indication: RETINAL DISORDER
     Dosage: EYE DROPS DAILY
  12. PRAVASTATIN [Concomitant]
     Indication: BLOOD CHOLESTEROL
     Dosage: DAILY

REACTIONS (3)
  - Injection site pain [Recovered/Resolved]
  - Wrong technique in drug usage process [Recovered/Resolved]
  - Wrong technique in drug usage process [Recovered/Resolved]
